FAERS Safety Report 10959755 (Version 1)
Quarter: 2015Q1

REPORT INFORMATION
  Report Type: Spontaneous
  Country: US (occurrence: None)
  Receive Date: 20150326
  Receipt Date: 20150326
  Transmission Date: 20150721
  Serious: Yes (Life-Threatening)
  Sender: FDA-Public Use
  Company Number: None

PATIENT
  Age: 66 Year
  Sex: Male
  Weight: 85.9 kg

DRUGS (1)
  1. PLASMA PROTEIN FRACTION [Suspect]
     Active Substance: PLASMA PROTEIN FRACTION (HUMAN)
     Indication: CARDIOVASCULAR DISORDER
     Route: 042
     Dates: start: 20150226, end: 20150226

REACTIONS (2)
  - Anaphylactic reaction [None]
  - Incorrect drug administration rate [None]

NARRATIVE: CASE EVENT DATE: 20150226
